FAERS Safety Report 14500008 (Version 1)
Quarter: 2018Q1

REPORT INFORMATION
  Report Type: Not Available
  Country: US (occurrence: US)
  Receive Date: 20180207
  Receipt Date: 20180207
  Transmission Date: 20180509
  Serious: No
  Sender: FDA-Public Use
  Company Number: US-FOUNDATIONCONSUMERHC-2017-US-013563

PATIENT
  Age: 27 Year
  Sex: Female
  Weight: 61.24 kg

DRUGS (2)
  1. AFTERA [Suspect]
     Active Substance: LEVONORGESTREL
     Dosage: 1 PILL
     Route: 048
     Dates: start: 20171113, end: 20171113
  2. MULTIVITAMIN [Concomitant]
     Active Substance: VITAMINS

REACTIONS (3)
  - Nausea [Recovering/Resolving]
  - Vomiting [Recovered/Resolved]
  - Feeling hot [Recovering/Resolving]

NARRATIVE: CASE EVENT DATE: 20171114
